FAERS Safety Report 20540608 (Version 1)
Quarter: 2022Q1

REPORT INFORMATION
  Report Type: Spontaneous
  Country: CN (occurrence: CN)
  Receive Date: 20220302
  Receipt Date: 20220302
  Transmission Date: 20220423
  Serious: Yes (Hospitalization)
  Sender: FDA-Public Use
  Company Number: CN-BAYER-2021A244002

PATIENT
  Age: 77 Year
  Sex: Female

DRUGS (2)
  1. XARELTO [Suspect]
     Active Substance: RIVAROXABAN
     Indication: Product used for unknown indication
     Dosage: 10 MG, QD
     Route: 048
     Dates: start: 20190701, end: 20191021
  2. XARELTO [Suspect]
     Active Substance: RIVAROXABAN
     Dosage: 5 MG, QD
     Route: 048
     Dates: start: 20191023

REACTIONS (5)
  - Dyspnoea [Unknown]
  - Coagulopathy [Recovering/Resolving]
  - Prescribed underdose [Unknown]
  - Underdose [Unknown]
  - Prescribed underdose [Unknown]

NARRATIVE: CASE EVENT DATE: 20190701
